FAERS Safety Report 25251975 (Version 1)
Quarter: 2025Q2

REPORT INFORMATION
  Report Type: Spontaneous
  Country: AU (occurrence: AU)
  Receive Date: 20250429
  Receipt Date: 20250429
  Transmission Date: 20250716
  Serious: Yes (Other)
  Sender: ELI LILLY AND COMPANY
  Company Number: AU-ELI_LILLY_AND_COMPANY-AU202504016347

PATIENT
  Age: 76 Year
  Sex: Female

DRUGS (4)
  1. TERIPARATIDE [Suspect]
     Active Substance: TERIPARATIDE
     Indication: Product used for unknown indication
     Route: 065
     Dates: start: 20241115, end: 20250117
  2. OXAZEPAM [Concomitant]
     Active Substance: OXAZEPAM
     Indication: Product used for unknown indication
     Route: 065
     Dates: start: 20250106
  3. OXAZEPAM [Concomitant]
     Active Substance: OXAZEPAM
     Route: 065
     Dates: start: 20250110
  4. OXAZEPAM [Concomitant]
     Active Substance: OXAZEPAM
     Route: 065
     Dates: start: 20250111

REACTIONS (10)
  - Decreased interest [Recovered/Resolved]
  - Movement disorder [Unknown]
  - Muscular weakness [Recovered/Resolved]
  - Nasal congestion [Unknown]
  - Tinnitus [Recovered/Resolved]
  - Insomnia [Recovered/Resolved]
  - Dizziness [Recovered/Resolved]
  - Fatigue [Recovered/Resolved]
  - Headache [Recovered/Resolved]
  - Asthenia [Recovered/Resolved]

NARRATIVE: CASE EVENT DATE: 20250104
